FAERS Safety Report 5073918-7 (Version None)
Quarter: 2006Q3

REPORT INFORMATION
  Report Type: 
  Country: None (occurrence: None)
  Receive Date: 20060808
  Receipt Date: 20050608
  Transmission Date: 20061208
  Serious: No
  Sender: FDA-Public Use
  Company Number: US-AMGEN-KDL137830

PATIENT
  Age: 74 Year
  Sex: Male

DRUGS (1)
  1. PROCRIT [Suspect]
     Indication: ANAEMIA OF MALIGNANT DISEASE
     Dates: end: 20040101

REACTIONS (4)
  - DYSPNOEA [None]
  - NAUSEA [None]
  - PYREXIA [None]
  - VOMITING [None]
